FAERS Safety Report 11652071 (Version 1)
Quarter: 2015Q4

REPORT INFORMATION
  Report Type: Spontaneous
  Country: US (occurrence: None)
  Receive Date: 20151021
  Receipt Date: 20151021
  Transmission Date: 20160304
  Serious: Yes (Other)
  Sender: FDA-Public Use
  Company Number: None

PATIENT
  Age: 13 Year
  Sex: Male

DRUGS (4)
  1. GUANFACINE ER [Suspect]
     Active Substance: GUANFACINE
     Indication: ATTENTION DEFICIT/HYPERACTIVITY DISORDER
     Dosage: 1/2 TAB (1MG) BID PO
     Route: 048
     Dates: start: 201503, end: 201504
  2. CONCERTA [Concomitant]
     Active Substance: METHYLPHENIDATE HYDROCHLORIDE
  3. HYDROXYZINE [Concomitant]
     Active Substance: HYDROXYZINE\HYDROXYZINE HYDROCHLORIDE
  4. MIRTAZIPINE [Concomitant]
     Active Substance: MIRTAZAPINE

REACTIONS (4)
  - Drug ineffective [None]
  - Product substitution issue [None]
  - Educational problem [None]
  - Abnormal behaviour [None]

NARRATIVE: CASE EVENT DATE: 20150422
